FAERS Safety Report 7756805-2 (Version None)
Quarter: 2011Q3

REPORT INFORMATION
  Report Type: 
  Country: None (occurrence: None)
  Receive Date: 20110916
  Receipt Date: 20100730
  Transmission Date: 20111222
  Serious: No
  Sender: FDA-Public Use
  Company Number: US-BAYER-201032029NA

PATIENT
  Sex: Female

DRUGS (1)
  1. MIRENA [Suspect]
     Indication: CONTRACEPTION
     Dosage: 20 ?G, CONT
     Route: 015
     Dates: start: 20080901, end: 20100630

REACTIONS (3)
  - MEDICAL DEVICE DISCOMFORT [None]
  - DEVICE DISLOCATION [None]
  - MEDICAL DEVICE COMPLICATION [None]
